FAERS Safety Report 19452668 (Version 1)
Quarter: 2021Q2

REPORT INFORMATION
  Report Type: Spontaneous
  Country: US (occurrence: US)
  Receive Date: 20210623
  Receipt Date: 20210623
  Transmission Date: 20210717
  Serious: Yes (Disabling)
  Sender: FDA-Public Use
  Company Number: None

PATIENT
  Age: 26 Year
  Sex: Female
  Weight: 49.5 kg

DRUGS (9)
  1. CIMETIDINE [Concomitant]
     Active Substance: CIMETIDINE
  2. EMGALITY [Suspect]
     Active Substance: GALCANEZUMAB-GNLM
     Indication: CLUSTER HEADACHE
     Dosage: ?          OTHER FREQUENCY:ONCE PER MONTH;?
     Route: 058
     Dates: start: 20200715
  3. CLOBETASOL OINTMENT [Concomitant]
     Active Substance: CLOBETASOL
  4. AZELASTINE NASAL SPRAY [Concomitant]
     Active Substance: AZELASTINE
  5. VITAMIN D [Concomitant]
     Active Substance: VITAMIN D NOS
  6. RIZATRIPTAN. [Concomitant]
     Active Substance: RIZATRIPTAN
  7. EMGALITY [Suspect]
     Active Substance: GALCANEZUMAB-GNLM
     Indication: MIGRAINE
     Dosage: ?          OTHER FREQUENCY:ONCE PER MONTH;?
     Route: 058
     Dates: start: 20200715
  8. ALLERFEX [Concomitant]
  9. ALLEGRA [Concomitant]
     Active Substance: FEXOFENADINE HYDROCHLORIDE

REACTIONS (7)
  - Dyspnoea [None]
  - Interstitial granulomatous dermatitis [None]
  - Chest pain [None]
  - Palpitations [None]
  - Heart rate increased [None]
  - Tendonitis [None]
  - Drug eruption [None]

NARRATIVE: CASE EVENT DATE: 20210101
